FAERS Safety Report 5653596-6 (Version None)
Quarter: 2008Q1

REPORT INFORMATION
  Report Type: 
  Country: None (occurrence: None)
  Receive Date: 20080306
  Receipt Date: 20080226
  Transmission Date: 20080703
  Serious: Yes (Hospitalization)
  Sender: FDA-Public Use
  Company Number: JP-ROCHE-530151

PATIENT
  Age: 27 Year
  Sex: Male
  Weight: 60 kg

DRUGS (9)
  1. ROCEPHIN [Suspect]
     Indication: INFECTION
     Route: 041
     Dates: start: 20071031, end: 20071031
  2. VOLTAREN [Concomitant]
     Route: 054
     Dates: start: 20071030
  3. AMINOFLUID [Concomitant]
     Route: 041
     Dates: start: 20071020, end: 20071031
  4. VITAMEDIN [Concomitant]
     Route: 050
     Dates: start: 20071020, end: 20071031
  5. FAMOTIDINE [Concomitant]
     Route: 050
     Dates: start: 20071020, end: 20071031
  6. PANTOL [Concomitant]
     Route: 050
     Dates: start: 20071020, end: 20071031
  7. MAGMITT [Concomitant]
     Dosage: FORM: ORAL FORMULATION.
     Route: 048
     Dates: start: 20071026
  8. ANALGESICS [Concomitant]
     Indication: PYREXIA
     Dosage: REPORTED AS SG (PYRAZALONE, ANTI-PYRETICS, ANALGESICS, ANTI-INFLAMMATORIES C).
     Route: 048
  9. CRAVIT [Concomitant]
     Route: 048
     Dates: start: 20071029, end: 20071031

REACTIONS (3)
  - ANAPHYLACTIC SHOCK [None]
  - DISSEMINATED INTRAVASCULAR COAGULATION [None]
  - HEPATITIS ACUTE [None]
